FAERS Safety Report 8011358-9 (Version None)
Quarter: 2011Q4

REPORT INFORMATION
  Report Type: 
  Country: None (occurrence: None)
  Receive Date: 20111222
  Receipt Date: 20111220
  Transmission Date: 20120403
  Serious: Yes (Other)
  Sender: FDA-Public Use
  Company Number: SP05412

PATIENT
  Age: 77 Year
  Sex: Female

DRUGS (2)
  1. MOVIPREP [Suspect]
     Indication: BOWEL PREPARATION
     Dosage: 2 LIT, ORAL
     Route: 048
     Dates: start: 20111127, end: 20111127
  2. BISACODYL [Concomitant]

REACTIONS (4)
  - SYNCOPE [None]
  - NAUSEA [None]
  - CARDIOVASCULAR DISORDER [None]
  - DIZZINESS [None]
